FAERS Safety Report 13395389 (Version 3)
Quarter: 2017Q2

REPORT INFORMATION
  Report Type: Spontaneous
  Country: US (occurrence: US)
  Receive Date: 20170403
  Receipt Date: 20170531
  Transmission Date: 20170830
  Serious: No
  Sender: FDA-Public Use
  Company Number: US-PFIZER INC-2017137669

PATIENT
  Age: 73 Year
  Sex: Female

DRUGS (2)
  1. ZETIA [Concomitant]
     Active Substance: EZETIMIBE
     Dosage: 10 MG, UNK
  2. ATORVASTATIN CALCIUM. [Suspect]
     Active Substance: ATORVASTATIN CALCIUM
     Indication: WEIGHT DECREASED
     Dosage: 40 MG, UNK

REACTIONS (5)
  - Vomiting [Not Recovered/Not Resolved]
  - Allergic reaction to excipient [Unknown]
  - Diarrhoea [Not Recovered/Not Resolved]
  - Blood cholesterol decreased [Unknown]
  - Weight decreased [Unknown]
